FAERS Safety Report 5664818-X (Version None)
Quarter: 2008Q1

REPORT INFORMATION
  Report Type: 
  Country: None (occurrence: None)
  Receive Date: 20080314
  Receipt Date: 20080305
  Transmission Date: 20080703
  Serious: Yes (Hospitalization)
  Sender: FDA-Public Use
  Company Number: JP-PFIZER INC-2007108129

PATIENT
  Sex: Male

DRUGS (18)
  1. NORVASC [Suspect]
     Indication: HYPERTENSION
     Dosage: DAILY DOSE:5MG-FREQ:DAILY
     Route: 048
     Dates: start: 20030106, end: 20080201
  2. NORVASC [Suspect]
     Dosage: DAILY DOSE:7.5MG-FREQ:DAILY
     Route: 048
  3. NORVASC [Suspect]
  4. LITHIUM CARBONATE [Suspect]
     Route: 048
  5. LANDSEN [Concomitant]
     Route: 048
  6. ZYPREXA [Concomitant]
     Route: 048
  7. CISDYNE [Concomitant]
     Route: 048
  8. GLYCYOL [Concomitant]
     Route: 048
  9. ATENDAL [Concomitant]
     Indication: HYPERTENSION
     Dosage: DAILY DOSE:50MG-FREQ:DAILY
     Route: 048
  10. POLARAMINE [Concomitant]
     Route: 048
  11. LACTULOSE [Concomitant]
     Route: 048
  12. AMINO ACIDS [Concomitant]
     Route: 048
  13. HERBAL PREPARATION [Concomitant]
     Route: 048
  14. SENNOSIDE A+B CALCIUM [Concomitant]
     Route: 048
  15. OXAROL [Concomitant]
     Indication: SEBORRHOEIC DERMATITIS
     Dosage: FREQ:BID DAILY
     Route: 062
  16. LOCOID [Concomitant]
     Indication: SEBORRHOEIC DERMATITIS
     Dosage: FREQ:BID DAILY
     Route: 062
  17. RINDERON-V [Concomitant]
     Indication: SEBORRHOEIC DERMATITIS
     Dosage: FREQ:BID DAILY
     Route: 062
  18. MYSER [Concomitant]
     Indication: SEBORRHOEIC DERMATITIS
     Dosage: FREQ:BID DAILY
     Route: 062

REACTIONS (3)
  - BIPOLAR I DISORDER [None]
  - CONDITION AGGRAVATED [None]
  - PSORIASIS [None]
